FAERS Safety Report 9030460 (Version 1)
Quarter: 2013Q1

REPORT INFORMATION
  Report Type: Spontaneous
  Country: NZ (occurrence: NZ)
  Receive Date: 20130122
  Receipt Date: 20130122
  Transmission Date: 20140127
  Serious: Yes (Other)
  Sender: FDA-Public Use
  Company Number: NZ-PFIZER INC-2012276303

PATIENT
  Age: 54 Year
  Sex: Female

DRUGS (8)
  1. ZARATOR [Suspect]
     Indication: BLOOD CHOLESTEROL ABNORMAL
     Dosage: 40 MG, ONCE DAILY (IN THE MORNING
     Route: 048
     Dates: start: 20121023
  2. METOPROLOL [Concomitant]
     Indication: HYPERTENSION
     Dosage: 47.5 MG, ONCE DAILY (IN THE MORNING)
     Route: 048
     Dates: start: 20120726
  3. ASPIRIN [Concomitant]
     Indication: ANTICOAGULANT THERAPY
     Dosage: 100 MG, ONCE DAILY (IN THE MORNING)
     Route: 048
     Dates: start: 20120726
  4. PARACETAMOL [Concomitant]
     Indication: PAIN
     Dosage: 1000 MG, FOUR TIMES DAILY
     Route: 048
     Dates: start: 20091015
  5. CODEINE [Concomitant]
     Indication: PAIN
     Dosage: 30 MG, ONCE DOSE (AT NIGHT)
     Route: 048
     Dates: start: 20091015
  6. AMITRIPTYLINE [Concomitant]
     Indication: PAIN
     Dosage: 50 MG, ONCE DAILY (AT NIGHT)
     Route: 048
     Dates: start: 20091015
  7. CLOPIDOGREL [Concomitant]
     Indication: ANTICOAGULANT THERAPY
     Dosage: 75 MG, ONCE DOSE (AT NIGHT)
     Route: 048
     Dates: start: 20120726
  8. CLOPIDOGREL [Concomitant]
     Indication: ANTICOAGULANT THERAPY

REACTIONS (6)
  - Epistaxis [Recovered/Resolved]
  - Dysgeusia [Recovered/Resolved]
  - Dizziness [Recovered/Resolved]
  - Palpitations [Recovered/Resolved]
  - Dyspnoea [Unknown]
  - Headache [Unknown]
